FAERS Safety Report 21733198 (Version 1)
Quarter: 2022Q4

REPORT INFORMATION
  Report Type: Spontaneous
  Country: CA (occurrence: CA)
  Receive Date: 20221215
  Receipt Date: 20221215
  Transmission Date: 20230112
  Serious: Yes (Other)
  Sender: FDA-Public Use
  Company Number: CA-BAYER-2022A168211

PATIENT
  Age: 65 Year
  Sex: Male

DRUGS (21)
  1. CIPROFLOXACIN [Suspect]
     Active Substance: CIPROFLOXACIN
     Dosage: 500 MG
     Route: 048
  2. PHENYTOIN SODIUM [Suspect]
     Active Substance: PHENYTOIN SODIUM
     Indication: Schizophrenia
     Dosage: 100 MG
     Route: 048
  3. PHENYTOIN SODIUM [Suspect]
     Active Substance: PHENYTOIN SODIUM
     Indication: Organic brain syndrome
     Dosage: 200 MG
  4. PHENYTOIN SODIUM [Suspect]
     Active Substance: PHENYTOIN SODIUM
     Indication: Epilepsy
  5. PHENYTOIN SODIUM [Suspect]
     Active Substance: PHENYTOIN SODIUM
     Indication: Seizure
  6. PHENYTOIN SODIUM [Suspect]
     Active Substance: PHENYTOIN SODIUM
     Indication: Cerebrovascular accident
  7. CHLORPROMAZINE [Suspect]
     Active Substance: CHLORPROMAZINE
     Indication: Schizophrenia
  8. CHLORPROMAZINE [Suspect]
     Active Substance: CHLORPROMAZINE
     Indication: Organic brain syndrome
  9. CHLORPROMAZINE [Suspect]
     Active Substance: CHLORPROMAZINE
     Indication: Epilepsy
  10. THIORIDAZINE [Suspect]
     Active Substance: THIORIDAZINE
     Indication: Schizophrenia
     Dosage: SUSPENSION ORAL
  11. THIORIDAZINE [Suspect]
     Active Substance: THIORIDAZINE
     Indication: Organic brain syndrome
  12. THIORIDAZINE [Suspect]
     Active Substance: THIORIDAZINE
     Indication: Epilepsy
  13. LORAZEPAM [Concomitant]
     Active Substance: LORAZEPAM
     Indication: Schizophrenia
  14. LORAZEPAM [Concomitant]
     Active Substance: LORAZEPAM
     Indication: Organic brain syndrome
  15. LORAZEPAM [Concomitant]
     Active Substance: LORAZEPAM
     Indication: Epilepsy
  16. CLONAZEPAM [Concomitant]
     Active Substance: CLONAZEPAM
     Indication: Schizophrenia
  17. CLONAZEPAM [Concomitant]
     Active Substance: CLONAZEPAM
     Indication: Organic brain syndrome
  18. CLONAZEPAM [Concomitant]
     Active Substance: CLONAZEPAM
     Indication: Epilepsy
  19. BENZTROPINE [Concomitant]
     Active Substance: BENZTROPINE
     Indication: Schizophrenia
  20. BENZTROPINE [Concomitant]
     Active Substance: BENZTROPINE
     Indication: Organic brain syndrome
  21. BENZTROPINE [Concomitant]
     Active Substance: BENZTROPINE
     Indication: Epilepsy

REACTIONS (2)
  - Seizure [Recovered/Resolved]
  - Drug interaction [Recovered/Resolved]
